FAERS Safety Report 4426189-6 (Version None)
Quarter: 2004Q3

REPORT INFORMATION
  Report Type: 
  Country: None (occurrence: None)
  Receive Date: 20040811
  Receipt Date: 20040727
  Transmission Date: 20050211
  Serious: Yes (Hospitalization)
  Sender: FDA-Public Use
  Company Number: 01P-163-0109907-00

PATIENT
  Age: 48 Year
  Sex: Female
  Weight: 63.5036 kg

DRUGS (30)
  1. BIAXIN [Suspect]
     Indication: ASTHMA
     Dosage: 500 MG, 2 IN 1 D , PER ORAL
     Route: 048
     Dates: start: 20010504
  2. BIAXIN [Suspect]
     Indication: PHARYNGOLARYNGEAL PAIN
     Dosage: 500 MG, 2 IN 1 D , PER ORAL
     Route: 048
     Dates: start: 20010504
  3. BIAXIN [Suspect]
     Indication: PYREXIA
     Dosage: 500 MG, 2 IN 1 D , PER ORAL
     Route: 048
     Dates: start: 20010504
  4. BIAXIN [Suspect]
     Indication: ASTHMA
     Dosage: 500 MG, 2 IN 1 D , PER ORAL
     Route: 048
     Dates: start: 20010511
  5. BIAXIN [Suspect]
     Indication: PHARYNGOLARYNGEAL PAIN
     Dosage: 500 MG, 2 IN 1 D , PER ORAL
     Route: 048
     Dates: start: 20010511
  6. BIAXIN [Suspect]
     Indication: PYREXIA
     Dosage: 500 MG, 2 IN 1 D , PER ORAL
     Route: 048
     Dates: start: 20010511
  7. SINGULAIR [Suspect]
     Indication: ASTHMA
     Dosage: 10 MG, 1 IN 1 D, PER ORAL
     Route: 048
     Dates: start: 20010516
  8. VERAPAMIL [Concomitant]
  9. CLONIDINE HCL [Concomitant]
  10. MULTIVITAMIN [Concomitant]
  11. AURALGAN [Concomitant]
  12. ALKA-SELTZER COLD [Concomitant]
  13. CORTISPORIN EAR DROPS [Concomitant]
  14. ALLEGRA-D [Concomitant]
  15. ASPIRIN [Concomitant]
  16. ALBUTEROL SULFATE [Concomitant]
  17. SALMETEROL XINAFOATE [Concomitant]
  18. FLUTICASONE PROPIONATE [Concomitant]
  19. PREDNISONE [Concomitant]
  20. METHYLPREDNISOLONE SODIUM SUCCINATE [Concomitant]
  21. NICOTINE [Concomitant]
  22. ALUMINUM HYDROXIDE GEL, DRIED [Concomitant]
  23. BUPROPION HYDROCHLORIDE [Concomitant]
  24. FAMOTIDINE [Concomitant]
  25. NICOTINE [Concomitant]
  26. OLOPATADINE HYDROCHLORIDE [Concomitant]
  27. TEMAZEPAM [Concomitant]
  28. CLONAZEPAM [Concomitant]
  29. METOPROLOL TARTRATE [Concomitant]
  30. AZITHROMYCIN [Concomitant]

REACTIONS (36)
  - ABDOMINAL DISTENSION [None]
  - ABDOMINAL PAIN [None]
  - ABDOMINAL PAIN UPPER [None]
  - ADVERSE DRUG REACTION [None]
  - ASTHMA [None]
  - ATRIAL FIBRILLATION [None]
  - BLOOD AMYLASE INCREASED [None]
  - BLOOD PRESSURE ABNORMAL [None]
  - BLOOD PRESSURE DECREASED [None]
  - COMPUTERISED TOMOGRAM ABNORMAL [None]
  - CONDITION AGGRAVATED [None]
  - CONSTIPATION [None]
  - CYANOSIS [None]
  - DEHYDRATION [None]
  - DIARRHOEA [None]
  - DIZZINESS [None]
  - DRUG HYPERSENSITIVITY [None]
  - ELECTROCARDIOGRAM ABNORMAL [None]
  - ELECTROCARDIOGRAM QT CORRECTED INTERVAL [None]
  - ELECTROCARDIOGRAM QT CORRECTED INTERVAL PROLONGED [None]
  - FAECAL OCCULT BLOOD POSITIVE [None]
  - HEART RATE DECREASED [None]
  - HEART RATE IRREGULAR [None]
  - HEPATIC FAILURE [None]
  - HEPATORENAL SYNDROME [None]
  - HYPERSENSITIVITY [None]
  - IMPLANT SITE HAEMORRHAGE [None]
  - LIPASE INCREASED [None]
  - MULTI-ORGAN FAILURE [None]
  - PNEUMONIA [None]
  - PULSE ABSENT [None]
  - RENAL FAILURE [None]
  - SEBORRHOEIC KERATOSIS [None]
  - SEPSIS [None]
  - SKIN DISCOLOURATION [None]
  - VOMITING [None]
